FAERS Safety Report 4733681-3 (Version None)
Quarter: 2005Q3

REPORT INFORMATION
  Report Type: 
  Country: None (occurrence: None)
  Receive Date: 20050729
  Receipt Date: 20050712
  Transmission Date: 20060218
  Serious: Yes (Hospitalization)
  Sender: FDA-Public Use
  Company Number: DE_050716416

PATIENT
  Age: 82 Year
  Sex: Female
  Weight: 65 kg

DRUGS (2)
  1. FORTEO [Suspect]
     Indication: OSTEOPOROSIS
     Dosage: 20 UG DAY
     Dates: start: 20050223
  2. CALCIMAGON (CALCIUM CARBONATE) [Concomitant]

REACTIONS (1)
  - RADIUS FRACTURE [None]
